FAERS Safety Report 4432221-6 (Version None)
Quarter: 2004Q3

REPORT INFORMATION
  Report Type: 
  Country: None (occurrence: None)
  Receive Date: 20040820
  Receipt Date: 20040809
  Transmission Date: 20050211
  Serious: Yes (Other)
  Sender: FDA-Public Use
  Company Number: 2004055439

PATIENT
  Age: 77 Year
  Sex: Female
  Weight: 53 kg

DRUGS (8)
  1. DILANTIN [Suspect]
     Indication: ILL-DEFINED DISORDER
     Dosage: 400 MG
     Dates: start: 19970129, end: 19970310
  2. TEMAZEPAM [Suspect]
     Indication: SLEEP DISORDER
     Dosage: 10 MG (10 MG), ORAL
     Route: 048
     Dates: start: 19970212, end: 19970310
  3. NITROFURANTOIN [Suspect]
     Indication: URINARY TRACT DISORDER
     Dosage: 200 MG (200 MG),ORAL
     Route: 048
     Dates: start: 19970303, end: 19970309
  4. COLOXYL WITH SENNA (DOCUSATE SODIUM, SENNOSIDE A+B) [Suspect]
     Indication: CONSTIPATION
     Dosage: 200 MG (200 MG), ORAL
     Route: 048
     Dates: start: 19970304, end: 19970310
  5. CODEINE PHOSPHATE AND ACETAMINOPHEN [Suspect]
     Indication: PAIN
     Dates: start: 19970212, end: 19970310
  6. ACETAMINOPHEN [Suspect]
     Indication: PAIN
     Dates: start: 19970203, end: 19970310
  7. NORFLOXACIN [Concomitant]
  8. CLONAZEPAM [Concomitant]

REACTIONS (10)
  - CONSTIPATION [None]
  - CONVULSION [None]
  - HEPATITIS CHOLESTATIC [None]
  - PAIN [None]
  - PNEUMONIA [None]
  - PYREXIA [None]
  - RASH ERYTHEMATOUS [None]
  - SLEEP DISORDER [None]
  - TONGUE ULCERATION [None]
  - URINARY TRACT DISORDER [None]
